FAERS Safety Report 15241289 (Version 1)
Quarter: 2018Q4

REPORT INFORMATION
  Report Type: Spontaneous
  Country: DE (occurrence: DE)
  Receive Date: 20180805
  Receipt Date: 20180805
  Transmission Date: 20190204
  Serious: Yes (Hospitalization)
  Sender: FDA-Public Use
  Company Number: DE-AUROBINDO-AUR-APL-2018-036537

PATIENT
  Age: 63 Year
  Sex: Female
  Weight: 56 kg

DRUGS (45)
  1. KOCHSALZ [Concomitant]
     Dosage: REPORTED IN LABORATORY LETTER FROM MAR-2017 ()
     Route: 048
  2. DEKRISTOL [Concomitant]
     Active Substance: CHOLECALCIFEROL
     Dosage: REPORTED IN LABORATORY LETTER FROM AUG-2016 ()
  3. DEKRISTOL [Concomitant]
     Active Substance: CHOLECALCIFEROL
     Dosage: REPORTED IN LABORATORY LETTER FROM AUG-2016 ()
  4. DEKRISTOL [Concomitant]
     Active Substance: CHOLECALCIFEROL
     Dosage: ONCE AT WEEK, REPORTED IN LABORATORY LETTER FROM MAR-2017 ()
  5. PANTOPRAZOLE [Concomitant]
     Active Substance: PANTOPRAZOLE
     Indication: PRODUCT USED FOR UNKNOWN INDICATION
     Dosage: AS NEEDED
     Route: 048
  6. RAMIPRIL TABLETS 5MG [Suspect]
     Active Substance: RAMIPRIL
     Indication: HYPERTENSION
     Route: 048
     Dates: start: 201401
  7. NOCUTIL                            /00361902/ [Suspect]
     Active Substance: DESMOPRESSIN ACETATE
     Indication: INAPPROPRIATE ANTIDIURETIC HORMONE SECRETION
     Dosage: 0.1MG-0.05MG-0.1MG, REPORTED IN LABORATORY LETTER FROM AUG-2016
     Route: 048
  8. ESTRAMON                           /00045401/ [Concomitant]
     Dosage: ESTRAMON 25 ?G REPORTED IN LABORATORY LETTER FROM AUG-2016 ()
     Route: 062
  9. PANTOPRAZOLE [Concomitant]
     Active Substance: PANTOPRAZOLE
     Dosage: AS NEEDED
     Route: 048
  10. SODIUM CHLORIDE. [Concomitant]
     Active Substance: SODIUM CHLORIDE
     Dosage: 2 TABLETS DAILY ()
     Route: 048
  11. NOCUTIL /00361902/ [Suspect]
     Active Substance: DESMOPRESSIN ACETATE
     Indication: INAPPROPRIATE ANTIDIURETIC HORMONE SECRETION
     Dosage: INCREASED TO 3X0.2 MG/D; FURTHER REDUCED TO MAX 0.4 MG/D
     Route: 048
     Dates: start: 201409
  12. NOCUTIL                            /00361902/ [Suspect]
     Active Substance: DESMOPRESSIN ACETATE
     Dosage: 0.1-0.05-0.05, REPORTED IN LABORATORY LETTER FROM MAR-2017
     Route: 048
  13. KOCHSALZ [Concomitant]
     Dosage: REPORTED IN LABORATORY LETTER FROM MAR-2017 ()
     Route: 048
  14. KOCHSALZ [Concomitant]
     Dosage: 2 OR 3 TIMES DAILY, REPORTED IN LABORATORY LETTER FROM AUG-2016
     Route: 048
  15. IBANDRONIC ACID. [Concomitant]
     Active Substance: IBANDRONIC ACID
     Dosage: EVERY 3 MONTH, LAST ONE IN JAN-2017 ()
     Dates: end: 201701
  16. DEKRISTOL [Concomitant]
     Active Substance: CHOLECALCIFEROL
     Dosage: ONCE AT WEEK, REPORTED IN LABORATORY LETTER FROM MAR-2017 ()
  17. DEKRISTOL [Concomitant]
     Active Substance: CHOLECALCIFEROL
     Dosage: ONCE AT WEEK, REPORTED IN LABORATORY LETTER FROM MAR-2017 ()
  18. ESTRAMON                           /00045401/ [Concomitant]
     Dosage: ESTRAMON 25 ?G REPORTED IN LABORATORY LETTER FROM AUG-2016 ()
     Route: 062
  19. HYDROCORTISONE. [Concomitant]
     Active Substance: HYDROCORTISONE
     Dosage: 1.5 TABLETS DAILY (1-0.5-0) ()
     Route: 048
     Dates: start: 20140909
  20. HYDROCORTISONE. [Concomitant]
     Active Substance: HYDROCORTISONE
     Dosage: 5 MG ON MORNING - 5 MG AT NOON, REPORTED IN LABORATORY LETTER FROM 16-MAR-2017
     Route: 048
  21. HYDROCORTISONE. [Concomitant]
     Active Substance: HYDROCORTISONE
     Dosage: ()
     Route: 048
  22. CITALOPRAM [Suspect]
     Active Substance: CITALOPRAM HYDROBROMIDE
     Indication: PRODUCT USED FOR UNKNOWN INDICATION
     Route: 065
     Dates: start: 201309, end: 201507
  23. DEKRISTOL [Concomitant]
     Active Substance: CHOLECALCIFEROL
     Dosage: REPORTED IN LABORATORY LETTER FROM AUG-2016 ()
  24. SODIUM CHLORIDE. [Concomitant]
     Active Substance: SODIUM CHLORIDE
     Dosage: 2 TABLETS DAILY ()
     Route: 048
  25. DEKRISTOL [Concomitant]
     Active Substance: CHOLECALCIFEROL
     Dosage: ONCE AT WEEK, REPORTED IN LABORATORY LETTER FROM MAR-2017 ()
  26. HYDROCORTISONE. [Concomitant]
     Active Substance: HYDROCORTISONE
     Dosage: ()
     Route: 048
  27. PANTOPRAZOLE [Concomitant]
     Active Substance: PANTOPRAZOLE
     Dosage: AS NEEDED
     Route: 048
  28. SODIUM CHLORIDE. [Concomitant]
     Active Substance: SODIUM CHLORIDE
     Indication: PRODUCT USED FOR UNKNOWN INDICATION
     Dosage: 2 TABLETS DAILY ()
     Route: 048
  29. SODIUM CHLORIDE. [Concomitant]
     Active Substance: SODIUM CHLORIDE
     Dosage: 2 TABLETS DAILY ()
     Route: 048
  30. KOCHSALZ [Concomitant]
     Dosage: REPORTED IN LABORATORY LETTER FROM MAR-2017 ()
     Route: 048
  31. ESTRAMON                           /00045401/ [Concomitant]
     Dosage: ESTRAMON 25 ?G REPORTED IN LABORATORY LETTER FROM AUG-2016 ()
     Route: 062
  32. HYDROCORTISONE. [Concomitant]
     Active Substance: HYDROCORTISONE
     Dosage: 5 MG ON MORNING - 5 MG AT NOON, REPORTED IN LABORATORY LETTER FROM 16-MAR-2017
     Route: 048
  33. PANTOPRAZOLE [Concomitant]
     Active Substance: PANTOPRAZOLE
     Dosage: AS NEEDED
     Route: 048
  34. KOCHSALZ [Concomitant]
     Dosage: 2 OR 3 TIMES DAILY, REPORTED IN LABORATORY LETTER FROM AUG-2016
     Route: 048
  35. KOCHSALZ [Concomitant]
     Dosage: 2 OR 3 TIMES DAILY, REPORTED IN LABORATORY LETTER FROM AUG-2016
     Route: 048
  36. DEKRISTOL [Concomitant]
     Active Substance: CHOLECALCIFEROL
     Dosage: REPORTED IN LABORATORY LETTER FROM AUG-2016 ()
  37. HYDROCORTISONE. [Concomitant]
     Active Substance: HYDROCORTISONE
     Dosage: 5 MG ON MORNING - 5 MG AT NOON, REPORTED IN LABORATORY LETTER FROM 16-MAR-2017
     Route: 048
  38. NOCUTIL                            /00361902/ [Suspect]
     Active Substance: DESMOPRESSIN ACETATE
     Dosage: 1-0.5-1 EACH INTAKE CA.1 H AFTER THE MEALS
     Route: 048
  39. KOCHSALZ [Concomitant]
     Dosage: 2 OR 3 TIMES DAILY, REPORTED IN LABORATORY LETTER FROM AUG-2016
     Route: 048
  40. KOCHSALZ [Concomitant]
     Dosage: REPORTED IN LABORATORY LETTER FROM MAR-2017 ()
     Route: 048
  41. ESTRAMON                           /00045401/ [Concomitant]
     Indication: OSTEOPOROSIS POSTMENOPAUSAL
     Dosage: ESTRAMON 25 ?G REPORTED IN LABORATORY LETTER FROM AUG-2016 ()
     Route: 062
  42. ESTRAMON                           /00045401/ [Concomitant]
     Dosage: DOSAGE UNKNOWN, REPORTED IN LABORATORY LETTER FROM MAR-2017 ()
     Route: 062
     Dates: start: 2017
  43. HYDROCORTISONE. [Concomitant]
     Active Substance: HYDROCORTISONE
     Indication: GLUCOCORTICOID DEFICIENCY
     Dosage: ()
     Route: 048
  44. HYDROCORTISONE. [Concomitant]
     Active Substance: HYDROCORTISONE
     Dosage: ()
     Route: 048
  45. HYDROCORTISONE. [Concomitant]
     Active Substance: HYDROCORTISONE
     Dosage: 5 MG ON MORNING - 5 MG AT NOON, REPORTED IN LABORATORY LETTER FROM 16-MAR-2017
     Route: 048

REACTIONS (13)
  - Contusion [Recovering/Resolving]
  - Abdominal discomfort [Recovered/Resolved]
  - Hyperhidrosis [Unknown]
  - Hyponatraemia [Recovering/Resolving]
  - Muscular weakness [Unknown]
  - Syncope [Recovered/Resolved]
  - Urticaria [Unknown]
  - Headache [Not Recovered/Not Resolved]
  - Nausea [Not Recovered/Not Resolved]
  - Hypertension [Unknown]
  - Urine output decreased [Unknown]
  - Dysgeusia [Unknown]
  - Product prescribing error [Unknown]

NARRATIVE: CASE EVENT DATE: 20150526
